FAERS Safety Report 23067602 (Version 3)
Quarter: 2023Q4

REPORT INFORMATION
  Report Type: Spontaneous
  Country: PL (occurrence: PL)
  Receive Date: 20231016
  Receipt Date: 20231104
  Transmission Date: 20240109
  Serious: Yes (Hospitalization, Other)
  Sender: FDA-Public Use
  Company Number: PL-POLPHARMA-469004

PATIENT
  Age: 55 Year
  Sex: Male

DRUGS (1)
  1. TENOFOVIR DISOPROXIL [Suspect]
     Active Substance: TENOFOVIR DISOPROXIL
     Indication: Chronic hepatitis B
     Dosage: 245 MILLIGRAM, ONCE A DAY
     Route: 065
     Dates: start: 2019

REACTIONS (5)
  - Fanconi syndrome acquired [Recovered/Resolved]
  - Osteomalacia [Recovered/Resolved]
  - Cachexia [Recovered/Resolved]
  - Deformity thorax [Recovered/Resolved]
  - Metabolic acidosis [Recovered/Resolved]
